FAERS Safety Report 24393764 (Version 2)
Quarter: 2024Q4

REPORT INFORMATION
  Report Type: Report from Study
  Country: TH (occurrence: TH)
  Receive Date: 20241003
  Receipt Date: 20241206
  Transmission Date: 20250115
  Serious: Yes (Hospitalization)
  Sender: DAIICHI
  Company Number: TH-DSJP-DSJ-2024-140046

PATIENT
  Age: 73 Year
  Sex: Female

DRUGS (6)
  1. ENHERTU [Suspect]
     Active Substance: FAM-TRASTUZUMAB DERUXTECAN-NXKI
     Indication: HER2 positive breast cancer
     Dosage: 200 MG
     Route: 042
     Dates: start: 20240704
  2. ENHERTU [Suspect]
     Active Substance: FAM-TRASTUZUMAB DERUXTECAN-NXKI
     Dosage: 100 MG
     Route: 042
     Dates: start: 20240704
  3. ENHERTU [Suspect]
     Active Substance: FAM-TRASTUZUMAB DERUXTECAN-NXKI
     Dosage: 100 MG
     Route: 042
  4. ENHERTU [Suspect]
     Active Substance: FAM-TRASTUZUMAB DERUXTECAN-NXKI
     Dosage: 100 MG
     Route: 042
     Dates: start: 20240725
  5. ENHERTU [Suspect]
     Active Substance: FAM-TRASTUZUMAB DERUXTECAN-NXKI
     Dosage: 100 MG
     Route: 042
     Dates: start: 20241024
  6. ENHERTU [Suspect]
     Active Substance: FAM-TRASTUZUMAB DERUXTECAN-NXKI
     Dosage: 100 MG
     Route: 042
     Dates: start: 20241121

REACTIONS (30)
  - Hyponatraemia [Unknown]
  - Palpitations [Unknown]
  - Blood pressure increased [Recovering/Resolving]
  - Hypoaesthesia oral [Unknown]
  - Hypoaesthesia [Unknown]
  - Hypoaesthesia [Unknown]
  - Lip swelling [Recovering/Resolving]
  - Dizziness [Unknown]
  - Dizziness [Unknown]
  - Muscle spasms [Unknown]
  - Headache [Recovering/Resolving]
  - Asthenia [Unknown]
  - Fatigue [Unknown]
  - Confusional state [Unknown]
  - Somnolence [Unknown]
  - Oropharyngeal pain [Unknown]
  - Dysphonia [Unknown]
  - Gait disturbance [Unknown]
  - Gastrooesophageal reflux disease [Unknown]
  - Abdominal pain upper [Not Recovered/Not Resolved]
  - Choking [Unknown]
  - Taste disorder [Unknown]
  - Parosmia [Unknown]
  - Nasopharyngitis [Unknown]
  - Cough [Unknown]
  - Nausea [Unknown]
  - Constipation [Unknown]
  - Diarrhoea [Unknown]
  - Decreased appetite [Unknown]
  - Therapy change [Unknown]

NARRATIVE: CASE EVENT DATE: 20241024
